FAERS Safety Report 6445930-4 (Version None)
Quarter: 2009Q4

REPORT INFORMATION
  Report Type: 
  Country: None (occurrence: None)
  Receive Date: 20091119
  Receipt Date: 20090126
  Transmission Date: 20100525
  Serious: No
  Sender: FDA-Public Use
  Company Number: A0765295A

PATIENT
  Age: 51 Year
  Sex: Female

DRUGS (8)
  1. WELLBUTRIN SR [Suspect]
     Indication: DEPRESSION
     Dosage: 150MG TWICE PER DAY
     Route: 048
     Dates: start: 20081202
  2. PAROXETINE HCL [Suspect]
     Indication: ANXIETY DISORDER
     Dosage: 20MG PER DAY
     Route: 048
     Dates: start: 20081102, end: 20090115
  3. TRAZODONE HCL [Concomitant]
  4. AMBIEN CR [Concomitant]
  5. RAMIPRIL [Concomitant]
  6. QVAR 40 [Concomitant]
     Route: 055
  7. LEVOTHYROXINE SODIUM [Concomitant]
  8. ANTIHISTAMINE [Concomitant]

REACTIONS (7)
  - BLEPHAROSPASM [None]
  - MOTOR DYSFUNCTION [None]
  - MUSCLE TWITCHING [None]
  - MUSCULAR WEAKNESS [None]
  - POOR QUALITY SLEEP [None]
  - SLEEP DISORDER [None]
  - TREMOR [None]
